FAERS Safety Report 5283051-7 (Version None)
Quarter: 2007Q1

REPORT INFORMATION
  Report Type: 
  Country: None (occurrence: None)
  Receive Date: 20070328
  Receipt Date: 20070328
  Transmission Date: 20070707
  Serious: Yes (Congenital Anomaly)
  Sender: FDA-Public Use
  Company Number: None

PATIENT
  Age: 26 Year
  Sex: Female
  Weight: 65.7716 kg

DRUGS (1)
  1. PAXIL [Suspect]
     Indication: DEPRESSED MOOD
     Dosage: 50 MG    1 DAILY  PO
     Route: 048
     Dates: start: 19980101, end: 20030101

REACTIONS (4)
  - DRUG EXPOSURE DURING PREGNANCY [None]
  - HYDROCEPHALUS [None]
  - PREGNANCY [None]
  - SPINA BIFIDA [None]
